FAERS Safety Report 17791267 (Version 1)
Quarter: 2020Q2

REPORT INFORMATION
  Report Type: Report from Study
  Country: AU (occurrence: AU)
  Receive Date: 20200515
  Receipt Date: 20200515
  Transmission Date: 20200714
  Serious: Yes (Other)
  Sender: FDA-Public Use
  Company Number: AU-JNJFOC-20180431622

PATIENT
  Age: 49 Year
  Sex: Female

DRUGS (2)
  1. STELARA [Suspect]
     Active Substance: USTEKINUMAB
     Indication: CROHN^S DISEASE
     Route: 042
     Dates: start: 20180424
  2. STELARA [Suspect]
     Active Substance: USTEKINUMAB
     Dosage: ONLY INFUSION HAS RECEIVED (SC DOSE NOT YET STARTED)
     Route: 058

REACTIONS (5)
  - Fatigue [Unknown]
  - Headache [Unknown]
  - Crohn^s disease [Unknown]
  - Abdominal discomfort [Unknown]
  - Sinus disorder [Unknown]

NARRATIVE: CASE EVENT DATE: 201804
